FAERS Safety Report 7618032-9 (Version None)
Quarter: 2011Q3

REPORT INFORMATION
  Report Type: 
  Country: None (occurrence: None)
  Receive Date: 20110718
  Receipt Date: 20110711
  Transmission Date: 20111222
  Serious: Yes (Other)
  Sender: FDA-Public Use
  Company Number: DK-GLAXOSMITHKLINE-B0733514A

PATIENT
  Sex: Female
  Weight: 92.6 kg

DRUGS (4)
  1. ALLI [Suspect]
     Indication: PRODUCT USED FOR UNKNOWN INDICATION
     Dosage: 60MG THREE TIMES PER DAY
     Dates: start: 20090101
  2. RISPERDAL [Concomitant]
     Route: 048
  3. TRISEKVENS [Concomitant]
  4. AMITRIPTYLINE HYDROCHLORIDE [Concomitant]
     Dosage: 50MG PER DAY

REACTIONS (3)
  - FALL [None]
  - DIZZINESS [None]
  - PSYCHOTIC DISORDER [None]
